FAERS Safety Report 5952183-X (Version None)
Quarter: 2008Q4

REPORT INFORMATION
  Report Type: 
  Country: None (occurrence: None)
  Receive Date: 20081113
  Receipt Date: 20080826
  Transmission Date: 20090506
  Serious: No
  Sender: FDA-Public Use
  Company Number: A0744456A

PATIENT
  Age: 34 Year
  Sex: Female

DRUGS (4)
  1. CARVEDILOL [Suspect]
     Dosage: 25MG TWICE PER DAY
     Route: 048
     Dates: start: 20060101
  2. LASIX [Concomitant]
  3. VICODIN [Concomitant]
  4. ASPIRIN [Concomitant]

REACTIONS (3)
  - CHEST PAIN [None]
  - DRUG INEFFECTIVE [None]
  - MALAISE [None]
